FAERS Safety Report 9617567 (Version 3)
Quarter: 2014Q2

REPORT INFORMATION
  Report Type: Spontaneous
  Country: CH (occurrence: CH)
  Receive Date: 20131011
  Receipt Date: 20140505
  Transmission Date: 20141212
  Serious: Yes (Death, Hospitalization, Other)
  Sender: FDA-Public Use
  Company Number: CH-B.I. PHARMACEUTICALS,INC./RIDGEFIELD-2013-BI-32385SI

PATIENT
  Age: 76 Year
  Sex: Male
  Weight: 71 kg

DRUGS (5)
  1. PRADAXA [Suspect]
     Indication: ATRIAL FIBRILLATION
     Dosage: 300 MG
     Route: 048
     Dates: start: 20130224, end: 20130924
  2. NEBILET [Concomitant]
     Indication: HYPERTENSION
     Dosage: 1.25 MG
     Route: 065
  3. COVRESUM [Concomitant]
     Indication: HYPERTENSION
     Dosage: 10 MG
     Route: 065
  4. AMIODARON [Concomitant]
     Indication: ARRHYTHMIA
     Dosage: 200 MG
     Route: 065
     Dates: start: 201303
  5. CORDARONE [Concomitant]
     Dosage: 100 MG
     Route: 065
     Dates: start: 2013

REACTIONS (13)
  - Pericardial haemorrhage [Fatal]
  - Shock haemorrhagic [Fatal]
  - Post procedural haemorrhage [Fatal]
  - Coagulopathy [Fatal]
  - Cardiac tamponade [Fatal]
  - Right ventricular dysfunction [Fatal]
  - Aortic intramural haematoma [Fatal]
  - Metabolic acidosis [Fatal]
  - Aortic dissection [Fatal]
  - Pericardial effusion [Fatal]
  - Aortic valve incompetence [Fatal]
  - Atrioventricular block first degree [Fatal]
  - Aortic aneurysm rupture [Fatal]
